FAERS Safety Report 15339106 (Version 1)
Quarter: 2018Q3

REPORT INFORMATION
  Report Type: Spontaneous
  Country: US (occurrence: US)
  Receive Date: 20180831
  Receipt Date: 20180831
  Transmission Date: 20181010
  Serious: No
  Sender: FDA-Public Use
  Company Number: US-TEVA-2018-US-948786

PATIENT
  Sex: Female

DRUGS (1)
  1. LIDOCAINE. [Suspect]
     Active Substance: LIDOCAINE
     Route: 061
     Dates: start: 20180823, end: 20180823

REACTIONS (2)
  - Expired product administered [Unknown]
  - Nausea [Unknown]

NARRATIVE: CASE EVENT DATE: 20180823
